FAERS Safety Report 8179663-3 (Version None)
Quarter: 2012Q1

REPORT INFORMATION
  Report Type: 
  Country: None (occurrence: None)
  Receive Date: 20120302
  Receipt Date: 20120223
  Transmission Date: 20120608
  Serious: Yes (Other)
  Sender: FDA-Public Use
  Company Number: NO-JNJFOC-20120213988

PATIENT

DRUGS (10)
  1. DOXORUBICIN HCL [Suspect]
     Indication: SARCOMA
     Route: 042
  2. RADIATION THERAPY NOS [Suspect]
     Indication: SARCOMA
     Route: 065
  3. IFOSFAMIDE [Suspect]
     Route: 042
  4. DOXORUBICIN HCL [Suspect]
     Route: 042
  5. DOXORUBICIN HCL [Suspect]
     Route: 042
  6. MESNA [Suspect]
     Indication: SARCOMA
     Route: 042
  7. MESNA [Suspect]
     Route: 042
  8. IFOSFAMIDE [Suspect]
     Indication: SARCOMA
     Route: 042
  9. IFOSFAMIDE [Suspect]
     Route: 042
  10. MESNA [Suspect]
     Route: 042

REACTIONS (1)
  - TRANSAMINASES ABNORMAL [None]
